FAERS Safety Report 7439817-8 (Version None)
Quarter: 2011Q2

REPORT INFORMATION
  Report Type: 
  Country: None (occurrence: None)
  Receive Date: 20110427
  Receipt Date: 20110413
  Transmission Date: 20111010
  Serious: Yes (Hospitalization)
  Sender: FDA-Public Use
  Company Number: CA-JNJFOC-20110406377

PATIENT
  Sex: Female
  Weight: 62.7 kg

DRUGS (11)
  1. VITAMIN B [Concomitant]
     Route: 065
  2. SERTRALINE [Concomitant]
     Route: 065
  3. FOLIC ACID [Concomitant]
     Route: 065
  4. METHOTREXATE [Concomitant]
     Route: 048
  5. SPIRIVA [Concomitant]
     Route: 065
  6. ADVAIR DISKUS 100/50 [Concomitant]
     Route: 065
  7. ACTONEL [Concomitant]
     Route: 065
  8. REMICADE [Suspect]
     Indication: CROHN'S DISEASE
     Route: 042
  9. IRON [Concomitant]
     Route: 065
  10. CALCIUM [Concomitant]
     Route: 065
  11. VITAMIN D [Concomitant]
     Route: 065

REACTIONS (1)
  - CATARACT [None]
